FAERS Safety Report 17281870 (Version 3)
Quarter: 2020Q2

REPORT INFORMATION
  Report Type: Report from Study
  Country: US (occurrence: US)
  Receive Date: 20200117
  Receipt Date: 20200529
  Transmission Date: 20200713
  Serious: No
  Sender: FDA-Public Use
  Company Number: NVSC2020US010973

PATIENT
  Age: 59 Year
  Sex: Female

DRUGS (1)
  1. ENTRESTO [Suspect]
     Active Substance: SACUBITRIL\VALSARTAN
     Indication: CARDIAC FAILURE CONGESTIVE
     Dosage: 49.51 MG, BID
     Route: 048

REACTIONS (6)
  - Inappropriate schedule of product administration [Unknown]
  - Fatigue [Unknown]
  - Medical diet [Unknown]
  - Blood pressure decreased [Unknown]
  - Dizziness [Unknown]
  - Extra dose administered [Unknown]
